FAERS Safety Report 24331757 (Version 2)
Quarter: 2024Q4

REPORT INFORMATION
  Report Type: Spontaneous
  Country: US (occurrence: US)
  Receive Date: 20240918
  Receipt Date: 20241023
  Transmission Date: 20250114
  Serious: No
  Sender: Unknown Manufacturer
  Company Number: US-862174955-ML2024-04866

PATIENT
  Age: 80 Year
  Sex: Female
  Weight: 63.5 kg

DRUGS (1)
  1. TRAVOPROST [Suspect]
     Active Substance: TRAVOPROST
     Indication: Glaucoma
     Dosage: DOSE: ONE DROP IN EACH EYE ONCE A DAY AT NIGHT
     Route: 047

REACTIONS (3)
  - Vision blurred [Unknown]
  - Product dose omission issue [Unknown]
  - Product packaging quantity issue [Unknown]
